FAERS Safety Report 4535569-X (Version None)
Quarter: 2004Q4

REPORT INFORMATION
  Report Type: 
  Country: None (occurrence: None)
  Receive Date: 20041214
  Receipt Date: 20041020
  Transmission Date: 20050328
  Serious: Yes (Other)
  Sender: FDA-Public Use
  Company Number: 2004240272US

PATIENT
  Sex: Female

DRUGS (1)
  1. BEXTRA [Suspect]
     Dosage: 10 MG, QD

REACTIONS (1)
  - GASTROINTESTINAL HAEMORRHAGE [None]
